FAERS Safety Report 11932294 (Version 1)
Quarter: 2016Q1

REPORT INFORMATION
  Report Type: Spontaneous
  Country: US (occurrence: US)
  Receive Date: 20160120
  Receipt Date: 20160120
  Transmission Date: 20160526
  Serious: Yes (Life-Threatening, Hospitalization)
  Sender: FDA-Public Use
  Company Number: US-ALK ABELLO INC-1046668

PATIENT
  Age: 31 Year
  Sex: Female

DRUGS (10)
  1. DELSEP [Concomitant]
     Route: 048
  2. STANDARDIZED GRASS POLLEN, GRASS MIX 5 [Suspect]
     Active Substance: AGROSTIS GIGANTEA POLLEN\ANTHOXANTHUM ODORATUM POLLEN\DACTYLIS GLOMERATA POLLEN\PHLEUM PRATENSE POLLEN\POA PRATENSIS POLLEN
     Route: 058
     Dates: start: 20151202, end: 20151217
  3. PEPCID [Concomitant]
     Active Substance: FAMOTIDINE
     Route: 048
  4. MIXTURE OF STANDARDIZED MITES [Suspect]
     Active Substance: DERMATOPHAGOIDES FARINAE\DERMATOPHAGOIDES PTERONYSSINUS
     Route: 058
     Dates: start: 20151202, end: 20151217
  5. CYCLOSPORINE. [Concomitant]
     Active Substance: CYCLOSPORINE
     Route: 048
  6. TREE MIXTURE [Suspect]
     Active Substance: ACER NEGUNDO POLLEN\ACER RUBRUM POLLEN\ACER SACCHARINUM POLLEN\ACER SACCHARUM POLLEN\AILANTHUS ALTISSIMA POLLEN\BETULA PAPYRIFERA POLLEN\CARPINUS CAROLINIANA POLLEN\CARYA OVATA POLLEN\CARYA TOMENTOSA POLLEN\CELTIS OCCIDENTALIS POLLEN\FAGUS GRANDIFOLIA POLLEN\FRAXINUS AMERICANA POLLEN\JUGLANS NIGRA P
     Route: 058
     Dates: start: 20151202, end: 20151217
  7. PROVENTIL [Concomitant]
     Active Substance: ALBUTEROL
     Route: 055
  8. MIXED RAGWEED [Suspect]
     Active Substance: AMBROSIA ARTEMISIIFOLIA POLLEN\AMBROSIA TRIFIDA POLLEN
     Route: 058
     Dates: start: 20151202, end: 20151217
  9. DOG EPITHELIUM [Suspect]
     Active Substance: CANIS LUPUS FAMILIARIS SKIN
     Route: 058
     Dates: start: 20151202, end: 20151217
  10. SINGULAIR [Concomitant]
     Active Substance: MONTELUKAST SODIUM
     Route: 048

REACTIONS (3)
  - Chest discomfort [Recovered/Resolved]
  - Dyspnoea [Recovered/Resolved]
  - Cough [Recovered/Resolved]

NARRATIVE: CASE EVENT DATE: 20151217
